FAERS Safety Report 21228347 (Version 1)
Quarter: 2022Q3

REPORT INFORMATION
  Report Type: Spontaneous
  Country: US (occurrence: US)
  Receive Date: 20220818
  Receipt Date: 20220818
  Transmission Date: 20221027
  Serious: Yes (Other)
  Sender: FDA-Public Use
  Company Number: US-MYLANLABS-2022M1086613

PATIENT
  Age: 9 Day

DRUGS (1)
  1. DOXEPIN [Suspect]
     Active Substance: DOXEPIN
     Indication: Insomnia
     Dosage: 35 MILLIGRAM, PM
     Route: 063

REACTIONS (6)
  - Poor feeding infant [Unknown]
  - Dysphagia [Unknown]
  - Vomiting [Unknown]
  - Hypotonia neonatal [Unknown]
  - Weight decrease neonatal [Unknown]
  - Exposure via breast milk [Unknown]
